FAERS Safety Report 9858225 (Version 1)
Quarter: 2014Q1

REPORT INFORMATION
  Report Type: Spontaneous
  Country: US (occurrence: None)
  Receive Date: 20140129
  Receipt Date: 20140129
  Transmission Date: 20141002
  Serious: Yes (Hospitalization)
  Sender: FDA-Public Use
  Company Number: None

PATIENT
  Age: 77 Year
  Sex: Male
  Weight: 132 kg

DRUGS (12)
  1. OXALIPLATIN [Suspect]
     Indication: COLORECTAL CANCER
     Dates: start: 20131008, end: 20131022
  2. VENLAFAXINE [Suspect]
     Indication: POLYNEUROPATHY
     Dates: start: 20131022, end: 20131112
  3. ALLOPURINOL [Concomitant]
  4. ASPIRIN [Concomitant]
  5. DEXAMETHASONE [Concomitant]
  6. HYDROCHLOROTHIAZIDE [Concomitant]
  7. KRILL OIL [Concomitant]
  8. LIDOCAINE-PRILOCAINE [Concomitant]
  9. L-METHYFOLATE [Concomitant]
  10. OMGEGA 3 FISH OIL CAPS [Concomitant]
  11. ONDENSETRON [Concomitant]
  12. SIMVASTATIN [Concomitant]

REACTIONS (2)
  - Oedema [None]
  - Deep vein thrombosis [None]
